FAERS Safety Report 10081967 (Version 4)
Quarter: 2014Q2

REPORT INFORMATION
  Report Type: Spontaneous
  Country: US (occurrence: US)
  Receive Date: 20140416
  Receipt Date: 20140526
  Transmission Date: 20141212
  Serious: No
  Sender: FDA-Public Use
  Company Number: US-009507513-1403USA010338

PATIENT
  Age: 32 Year
  Sex: Female
  Weight: 128.8 kg

DRUGS (2)
  1. IMPLANON [Suspect]
     Indication: PRODUCT USED FOR UNKNOWN INDICATION
     Dosage: UNK
     Route: 059
     Dates: start: 2008, end: 2011
  2. IMPLANON [Suspect]
     Dosage: UNK
     Route: 059
     Dates: start: 20110605

REACTIONS (6)
  - Amenorrhoea [Not Recovered/Not Resolved]
  - Medical device complication [Recovered/Resolved]
  - Device deployment issue [Recovering/Resolving]
  - Device difficult to use [Recovering/Resolving]
  - Menstruation irregular [Not Recovered/Not Resolved]
  - Weight increased [Not Recovered/Not Resolved]
